FAERS Safety Report 5097901-0 (Version None)
Quarter: 2006Q3

REPORT INFORMATION
  Report Type: 
  Country: None (occurrence: None)
  Receive Date: 20060905
  Receipt Date: 20060905
  Transmission Date: 20061208
  Serious: No
  Sender: FDA-Public Use
  Company Number: None

PATIENT
  Age: 55 Year
  Sex: Male
  Weight: 81.6475 kg

DRUGS (1)
  1. MIRAPEX [Suspect]
     Dosage: 1 TABLET 3 TIMES A DAY PO
     Route: 048

REACTIONS (3)
  - BANKRUPTCY [None]
  - DIVORCED [None]
  - GAMBLING [None]
